FAERS Safety Report 16614486 (Version 1)
Quarter: 2019Q3

REPORT INFORMATION
  Report Type: Report from Study
  Country: JP (occurrence: JP)
  Receive Date: 20190723
  Receipt Date: 20190723
  Transmission Date: 20191004
  Serious: Yes (Other)
  Sender: FDA-Public Use
  Company Number: JP-TEVA-2019-JP-1082105

PATIENT
  Age: 52 Year
  Sex: Female

DRUGS (8)
  1. PREDNISOLONE. [Suspect]
     Active Substance: PREDNISOLONE
     Dosage: 10MG, THEN REDUCED TO 5MG
     Route: 065
     Dates: start: 200903, end: 201103
  2. TOCILIZUMAB. [Suspect]
     Active Substance: TOCILIZUMAB
     Dosage: 8 MG/KG
     Route: 065
     Dates: start: 200903, end: 201103
  3. PREDNISOLONE. [Suspect]
     Active Substance: PREDNISOLONE
     Dosage: 5MG, THEN REDUCED TO 2.5MG
     Route: 065
     Dates: start: 200903, end: 201103
  4. TOCILIZUMAB. [Suspect]
     Active Substance: TOCILIZUMAB
     Indication: RHEUMATOID ARTHRITIS
     Dosage: 8 MG/KG
     Route: 065
     Dates: start: 200401, end: 200805
  5. PREDNISOLONE. [Suspect]
     Active Substance: PREDNISOLONE
     Indication: RHEUMATOID ARTHRITIS
     Dosage: 5MG
     Route: 065
  6. PREDNISOLONE. [Suspect]
     Active Substance: PREDNISOLONE
     Dosage: 2.5MG
     Route: 065
     Dates: start: 200903, end: 201103
  7. METHOTREXATE. [Suspect]
     Active Substance: METHOTREXATE
     Dosage: 8MG
     Route: 065
     Dates: start: 200903, end: 201103
  8. METHOTREXATE. [Suspect]
     Active Substance: METHOTREXATE
     Indication: RHEUMATOID ARTHRITIS
     Dosage: 6MG
     Route: 065

REACTIONS (2)
  - Adult T-cell lymphoma/leukaemia [Recovered/Resolved]
  - Human T-cell lymphotropic virus type I infection [Unknown]

NARRATIVE: CASE EVENT DATE: 201103
